FAERS Safety Report 12832263 (Version 1)
Quarter: 2016Q4

REPORT INFORMATION
  Report Type: Spontaneous
  Country: US (occurrence: US)
  Receive Date: 20161010
  Receipt Date: 20161010
  Transmission Date: 20170207
  Serious: No
  Sender: FDA-Public Use
  Company Number: US-JAZZ-2016-US-013041

PATIENT
  Age: 54 Year
  Sex: Female

DRUGS (33)
  1. XYREM [Suspect]
     Active Substance: SODIUM OXYBATE
     Dosage: 4.5 G, BID
     Route: 048
     Dates: start: 201101
  2. MARIJUANA [Suspect]
     Active Substance: CANNABIS SATIVA SUBSP. INDICA TOP
     Indication: PRODUCT USED FOR UNKNOWN INDICATION
     Dosage: UNK
     Dates: start: 20130701, end: 20130731
  3. HYDROXYCHLOROQUINE [Concomitant]
     Active Substance: HYDROXYCHLOROQUINE
  4. OPANA [Concomitant]
     Active Substance: OXYMORPHONE HYDROCHLORIDE
  5. VITAMIN C [Concomitant]
     Active Substance: ASCORBIC ACID
  6. XYREM [Suspect]
     Active Substance: SODIUM OXYBATE
     Dosage: 4.5 G, BID
     Route: 048
     Dates: start: 201012, end: 2010
  7. XYREM [Suspect]
     Active Substance: SODIUM OXYBATE
     Dosage: 3 G, BID
     Route: 048
     Dates: start: 201602, end: 201603
  8. IMODIUM A-D [Concomitant]
     Active Substance: LOPERAMIDE HYDROCHLORIDE
  9. LORAZEPAM. [Concomitant]
     Active Substance: LORAZEPAM
  10. VITAMIN D [Concomitant]
     Active Substance: CHOLECALCIFEROL
  11. XYREM [Suspect]
     Active Substance: SODIUM OXYBATE
     Dosage: 4.5 G, BID
     Route: 048
     Dates: start: 200909, end: 2009
  12. XYREM [Suspect]
     Active Substance: SODIUM OXYBATE
     Dosage: 4.5 G, BID
     Route: 048
     Dates: start: 201206, end: 2013
  13. GABAPENTIN. [Concomitant]
     Active Substance: GABAPENTIN
  14. ESTROGEN/METHYLTES [Concomitant]
     Active Substance: ESTROGENS\METHYLTESTOSTERONE
  15. LEVOTHYROXINE SODIUM. [Concomitant]
     Active Substance: LEVOTHYROXINE SODIUM
  16. STOOL SOFTENER (DOCUSATE CALCIUM) [Concomitant]
     Active Substance: DOCUSATE CALCIUM
  17. ORPHENADRINE [Suspect]
     Active Substance: ORPHENADRINE
     Indication: PRODUCT USED FOR UNKNOWN INDICATION
     Dosage: UNK
     Dates: start: 20160517, end: 20160706
  18. PANTOPRAZOLE SODIUM. [Concomitant]
     Active Substance: PANTOPRAZOLE SODIUM
  19. CYCLOBENZAPRINE [Concomitant]
     Active Substance: CYCLOBENZAPRINE
  20. TESTOSTERONE. [Concomitant]
     Active Substance: TESTOSTERONE
  21. XYREM [Suspect]
     Active Substance: SODIUM OXYBATE
     Indication: FIBROMYALGIA
     Dosage: 2.25 G, BID
     Route: 048
     Dates: start: 200909, end: 200909
  22. DHEA [Concomitant]
     Active Substance: PRASTERONE
  23. LOMOTIL [Concomitant]
     Active Substance: ATROPINE SULFATE\DIPHENOXYLATE HYDROCHLORIDE
  24. VITAMIN B COMPLEX [Concomitant]
     Active Substance: CYANOCOBALAMIN\DEXPANTHENOL\NIACINAMIDE\PYRIDOXINE HYDROCHLORIDE\RIBOFLAVIN 5^-PHOSPHATE SODIUM\THIAMINE HYDROCHLORIDE\VITAMIN B COMPLEX
  25. DIAZEPAM. [Concomitant]
     Active Substance: DIAZEPAM
  26. EFFEXOR [Concomitant]
     Active Substance: VENLAFAXINE HYDROCHLORIDE
  27. SENNA LEAVES [Concomitant]
     Active Substance: SENNOSIDES A AND B
  28. TURMERIC [Concomitant]
     Active Substance: TURMERIC
  29. XYREM [Suspect]
     Active Substance: SODIUM OXYBATE
     Dosage: DOSE ADJUSTMENTS
     Route: 048
     Dates: start: 200909, end: 200909
  30. XYREM [Suspect]
     Active Substance: SODIUM OXYBATE
     Dosage: 4 G, BID
     Route: 048
     Dates: start: 201603
  31. HYDROXYZINE HCL [Concomitant]
     Active Substance: HYDROXYZINE HYDROCHLORIDE
  32. DICYCLOMINE [Concomitant]
     Active Substance: DICYCLOMINE HYDROCHLORIDE
  33. MORPHINE SULF [Concomitant]
     Active Substance: MORPHINE SULFATE

REACTIONS (13)
  - Insomnia [Unknown]
  - Flushing [Unknown]
  - Hypertension [Unknown]
  - Nausea [Unknown]
  - Tremor [Unknown]
  - Paranoia [Unknown]
  - Vomiting [Unknown]
  - Palpitations [Unknown]
  - Gastrooesophageal reflux disease [Recovered/Resolved]
  - Hyperhidrosis [Unknown]
  - Mental disorder [Unknown]
  - Influenza [Recovered/Resolved]
  - Substance use [Unknown]

NARRATIVE: CASE EVENT DATE: 2012
